FAERS Safety Report 6672749-1 (Version None)
Quarter: 2010Q2

REPORT INFORMATION
  Report Type: 
  Country: None (occurrence: None)
  Receive Date: 20100408
  Receipt Date: 20100329
  Transmission Date: 20101027
  Serious: Yes (Other)
  Sender: FDA-Public Use
  Company Number: JP-PFIZER INC-2010041562

PATIENT
  Age: 86 Year
  Sex: Female

DRUGS (1)
  1. SULPERAZON [Suspect]
     Dosage: 1 G, 2X/DAY
     Route: 042
     Dates: start: 20100319

REACTIONS (2)
  - ERYTHEMA [None]
  - GENERALISED ERYTHEMA [None]
